FAERS Safety Report 19086554 (Version 4)
Quarter: 2024Q4

REPORT INFORMATION
  Report Type: Spontaneous
  Country: CA (occurrence: CA)
  Receive Date: 20210402
  Receipt Date: 20241014
  Transmission Date: 20250115
  Serious: Yes (Death)
  Sender: ALEXION PHARMACEUTICALS
  Company Number: 2021A247781

PATIENT
  Age: 72 Year

DRUGS (5)
  1. QUETIAPINE FUMARATE [Suspect]
     Active Substance: QUETIAPINE FUMARATE
     Indication: Product used for unknown indication
     Dosage: UNKNOWN
  2. QUETIAPINE FUMARATE [Suspect]
     Active Substance: QUETIAPINE FUMARATE
     Dosage: 100 MILLIGRAM, UNK, FREQUENCY: UNK
  3. OLANZAPINE [Suspect]
     Active Substance: OLANZAPINE
     Indication: Product used for unknown indication
     Dosage: 1.25 MILLIGRAM, UNK, FREQUENCY: UNK
  4. REXULTI [Suspect]
     Active Substance: BREXPIPRAZOLE
     Indication: Product used for unknown indication
     Dosage: .5 MILLIGRAM, UNK, FREQUENCY: UNK
  5. REXULTI [Suspect]
     Active Substance: BREXPIPRAZOLE
     Indication: Dementia
     Dosage: .25 MILLIGRAM, UNK, FREQUENCY: UNK

REACTIONS (1)
  - Discoloured vomit [Fatal]
